FAERS Safety Report 9663485 (Version 2)
Quarter: 2013Q4

REPORT INFORMATION
  Report Type: Spontaneous
  Country: CN (occurrence: CN)
  Receive Date: 20131101
  Receipt Date: 20131101
  Transmission Date: 20140711
  Serious: Yes (Death, Life-Threatening, Other)
  Sender: FDA-Public Use
  Company Number: CN-SA-CERZ-1003150

PATIENT
  Age: 7 Year
  Sex: Male
  Weight: 20 kg

DRUGS (2)
  1. CEREZYME [Suspect]
     Indication: GAUCHER^S DISEASE
     Dosage: 80 U/KG, PER MONTH DOSE:80 UNIT(S)/KILOGRAM BODYWEIGHT
     Route: 042
     Dates: start: 200708
  2. CEREZYME [Suspect]
     Indication: GAUCHER^S DISEASE
     Dosage: 5 U/KG, UNK DOSE:5 UNIT(S)/KILOGRAM BODYWEIGHT
     Route: 042
     Dates: start: 20130817

REACTIONS (4)
  - Convulsion [Fatal]
  - Loss of consciousness [Fatal]
  - Hyperpyrexia [Not Recovered/Not Resolved]
  - Bone pain [Not Recovered/Not Resolved]
